FAERS Safety Report 6575168-1 (Version None)
Quarter: 2010Q1

REPORT INFORMATION
  Report Type: 
  Country: None (occurrence: None)
  Receive Date: 20100209
  Receipt Date: 20100202
  Transmission Date: 20100710
  Serious: Yes (Hospitalization)
  Sender: FDA-Public Use
  Company Number: US-ROXANE LABORATORIES, INC.-2010-RO-00120RO

PATIENT
  Age: 59 Year
  Sex: Male

DRUGS (9)
  1. PROPRANOLOL [Suspect]
  2. FUROSEMIDE [Suspect]
  3. SERTRALINE HCL [Suspect]
  4. LISINOPRIL [Suspect]
  5. SPIRONOLACTONE [Suspect]
  6. INSULIN [Suspect]
  7. GABAPENTIN [Suspect]
  8. LACTULOSE [Suspect]
  9. ANTI EMETICS [Concomitant]
     Indication: INTESTINAL OBSTRUCTION

REACTIONS (1)
  - SCLEROSING ENCAPSULATING PERITONITIS [None]
